FAERS Safety Report 21433922 (Version 1)
Quarter: 2022Q4

REPORT INFORMATION
  Report Type: Spontaneous
  Country: LB (occurrence: LB)
  Receive Date: 20221010
  Receipt Date: 20221010
  Transmission Date: 20230112
  Serious: Yes (Hospitalization)
  Sender: FDA-Public Use
  Company Number: LB-AMGEN-LBNSP2022171579

PATIENT
  Age: 23 Year
  Sex: Female
  Weight: 68 kg

DRUGS (4)
  1. BLINCYTO [Suspect]
     Active Substance: BLINATUMOMAB
     Indication: Lymphocytic leukaemia
     Dosage: UNK (EACH OF 28 DAYS)
     Route: 065
     Dates: start: 2022, end: 2022
  2. BLINCYTO [Suspect]
     Active Substance: BLINATUMOMAB
     Dosage: UNK (EACH OF 28 DAYS)
     Route: 065
     Dates: start: 2022, end: 202209
  3. VALTREX [Concomitant]
     Active Substance: VALACYCLOVIR HYDROCHLORIDE
     Dosage: UNK, QD
  4. NEXIUM [Concomitant]
     Active Substance: ESOMEPRAZOLE MAGNESIUM
     Dosage: UNK UNK, BID

REACTIONS (2)
  - Polyp [Recovered/Resolved]
  - Bacterial infection [Recovered/Resolved]

NARRATIVE: CASE EVENT DATE: 20220917
